FAERS Safety Report 17874268 (Version 1)
Quarter: 2020Q2

REPORT INFORMATION
  Report Type: Spontaneous
  Country: US (occurrence: US)
  Receive Date: 20200609
  Receipt Date: 20200609
  Transmission Date: 20200714
  Serious: No
  Sender: FDA-Public Use
  Company Number: US-AUROBINDO-AUR-APL-2020-010589

PATIENT
  Age: 75 Year
  Sex: Female
  Weight: 90.71 kg

DRUGS (1)
  1. VENLAFAXINE EXTENDED RELEASE CAPSULE [Suspect]
     Active Substance: VENLAFAXINE HYDROCHLORIDE
     Indication: ANXIETY
     Dosage: 75 MILLIGRAM, DAILY
     Route: 065

REACTIONS (4)
  - Nightmare [Unknown]
  - Poor quality sleep [Unknown]
  - Feeling abnormal [Unknown]
  - Product use complaint [Unknown]
